FAERS Safety Report 15366699 (Version 1)
Quarter: 2018Q3

REPORT INFORMATION
  Report Type: Spontaneous
  Country: US (occurrence: US)
  Receive Date: 20180902
  Receipt Date: 20180902
  Transmission Date: 20181010
  Serious: Yes (Disabling, Other)
  Sender: FDA-Public Use
  Company Number: None

PATIENT
  Age: 32 Year
  Sex: Male
  Weight: 114.75 kg

DRUGS (2)
  1. SUBOXONE [Suspect]
     Active Substance: BUPRENORPHINE HYDROCHLORIDE\NALOXONE HYDROCHLORIDE
     Indication: DRUG DEPENDENCE
     Dosage: ?          QUANTITY:1 FILM;?
     Route: 060
  2. SUBOXONE [Suspect]
     Active Substance: BUPRENORPHINE HYDROCHLORIDE\NALOXONE HYDROCHLORIDE
     Indication: PAIN MANAGEMENT
     Dosage: ?          QUANTITY:1 FILM;?
     Route: 060

REACTIONS (12)
  - Gingival pain [None]
  - Cough [None]
  - Therapy change [None]
  - Productive cough [None]
  - Candida infection [None]
  - Accident at work [None]
  - Swollen tongue [None]
  - Choking [None]
  - Pain in jaw [None]
  - Glossodynia [None]
  - Tongue discomfort [None]
  - Spinal column injury [None]

NARRATIVE: CASE EVENT DATE: 20180807
